FAERS Safety Report 8588394-7 (Version None)
Quarter: 2012Q3

REPORT INFORMATION
  Report Type: 
  Country: None (occurrence: None)
  Receive Date: 20120813
  Receipt Date: 20120807
  Transmission Date: 20120928
  Serious: Yes (Death, Other)
  Sender: FDA-Public Use
  Company Number: FR-JNJFOC-20120804819

PATIENT

DRUGS (8)
  1. PREDNISONE TAB [Suspect]
     Indication: DIFFUSE LARGE B-CELL LYMPHOMA
     Dosage: DAYS 1 THROUGH 5
     Route: 065
  2. VINCRISTINE [Suspect]
     Indication: DIFFUSE LARGE B-CELL LYMPHOMA
     Dosage: DAY 1 IN R-CHOP REGIMEN
     Route: 065
  3. BLEOMYCIN [Suspect]
     Indication: DIFFUSE LARGE B-CELL LYMPHOMA
     Dosage: DAYS 1 AND 5
     Route: 065
  4. RITUXIMAB [Suspect]
     Indication: DIFFUSE LARGE B-CELL LYMPHOMA
     Dosage: DAY 1, IN R-CHOP REGIMEN
     Route: 065
  5. FLUORODEOXYGLUCOSE F 18 [Concomitant]
     Indication: DIFFUSE LARGE B-CELL LYMPHOMA
     Route: 042
  6. VINDESINE [Suspect]
     Indication: DIFFUSE LARGE B-CELL LYMPHOMA
     Dosage: DAYS 1 AND 5
     Route: 065
  7. DOXORUBICIN HCL [Suspect]
     Indication: DIFFUSE LARGE B-CELL LYMPHOMA
     Dosage: DAY 1,PATIENTS ON R-CHOP RECIEVED 50 MG/M2; AND ON ACVBP RECEIVED 75 MG/M2 ON DAY 1
     Route: 042
  8. CYCLOPHOSPHAMIDE [Suspect]
     Indication: DIFFUSE LARGE B-CELL LYMPHOMA
     Dosage: PATIENTS ON R-CHOP RECEIVED 750 MG/M2 ON DAY 1; AND ACVBP RECEIVED 1200 MG/M2
     Route: 065

REACTIONS (3)
  - DIFFUSE LARGE B-CELL LYMPHOMA [None]
  - SEPSIS [None]
  - DIFFUSE LARGE B-CELL LYMPHOMA RECURRENT [None]
